FAERS Safety Report 19630160 (Version 7)
Quarter: 2021Q4

REPORT INFORMATION
  Report Type: Spontaneous
  Country: IN (occurrence: IN)
  Receive Date: 20210728
  Receipt Date: 20211109
  Transmission Date: 20220303
  Serious: Yes (Death, Hospitalization, Other)
  Sender: FDA-Public Use
  Company Number: IN-PFIZER INC-2017206420

PATIENT
  Age: 64 Year
  Sex: Female

DRUGS (7)
  1. PALBOCICLIB [Suspect]
     Active Substance: PALBOCICLIB
     Indication: Breast cancer metastatic
     Dosage: 125 MG, 1X/DAY
     Route: 048
     Dates: start: 20161202, end: 202105
  2. LETROZOLE [Concomitant]
     Active Substance: LETROZOLE
     Dosage: 2.5 MG, UNK
  3. FASLODEX [Concomitant]
     Active Substance: FULVESTRANT
     Dosage: 250 MG, UNK
  4. FASLODEX [Concomitant]
     Active Substance: FULVESTRANT
     Dosage: 500 MG, UNK (D1-D15-D29)
  5. FASLODEX [Concomitant]
     Active Substance: FULVESTRANT
     Dosage: UNK, MONTHLY
  6. XGEVA [Concomitant]
     Active Substance: DENOSUMAB
     Dosage: UNK
  7. METFORMIN [Concomitant]
     Active Substance: METFORMIN HYDROCHLORIDE
     Indication: Diabetes mellitus
     Dosage: UNK

REACTIONS (12)
  - Jaundice [Fatal]
  - Dizziness [Fatal]
  - Blood bilirubin increased [Unknown]
  - Meningioma [Unknown]
  - Cerebral haemorrhage [Unknown]
  - Cerebellar haemorrhage [Unknown]
  - Posterior reversible encephalopathy syndrome [Unknown]
  - Throat irritation [Unknown]
  - Tongue ulceration [Unknown]
  - Lip ulceration [Unknown]
  - Blister [Unknown]
  - Neoplasm progression [Unknown]
